FAERS Safety Report 10086193 (Version 3)
Quarter: 2014Q2

REPORT INFORMATION
  Report Type: Spontaneous
  Country: FR (occurrence: None)
  Receive Date: 20140416
  Receipt Date: 20140502
  Transmission Date: 20141212
  Serious: Yes (Other)
  Sender: FDA-Public Use
  Company Number: 7282039

PATIENT
  Age: 53 Year
  Sex: Male

DRUGS (2)
  1. LEVOTHYROX [Suspect]
     Indication: PRODUCT USED FOR UNKNOWN INDICATION
     Dosage: 125 MCG (IN THE MORNING ON EMPTY STOMACH)
  2. LIOTHYRONINE SODIUM [Suspect]
     Indication: PRODUCT USED FOR UNKNOWN INDICATION
     Dosage: 1 DF ( TABLET ) THERAPY DATES - STOPPED

REACTIONS (3)
  - No therapeutic response [None]
  - Blood thyroid stimulating hormone increased [None]
  - Hypothyroidism [None]
